FAERS Safety Report 19207342 (Version 3)
Quarter: 2021Q3

REPORT INFORMATION
  Report Type: Spontaneous
  Country: DE (occurrence: DE)
  Receive Date: 20210503
  Receipt Date: 20210928
  Transmission Date: 20211014
  Serious: Yes (Hospitalization, Other)
  Sender: FDA-Public Use
  Company Number: DE-ASTRAZENECA-2021A375786

PATIENT
  Age: 11099 Day
  Sex: Male

DRUGS (2)
  1. FORXIGA [Suspect]
     Active Substance: DAPAGLIFLOZIN
     Indication: TYPE 2 DIABETES MELLITUS
     Route: 048
     Dates: start: 20210318, end: 20210322
  2. METFORMIN [Concomitant]
     Active Substance: METFORMIN HYDROCHLORIDE
     Indication: TYPE 2 DIABETES MELLITUS
     Dosage: 850 UNITS, HALF DOSE TWICE DAILY
     Dates: start: 20210317

REACTIONS (3)
  - Ketoacidosis [Recovered/Resolved]
  - Weight decreased [Unknown]
  - Exercise tolerance increased [Unknown]

NARRATIVE: CASE EVENT DATE: 20210322
